FAERS Safety Report 10903499 (Version 1)
Quarter: 2015Q1

REPORT INFORMATION
  Report Type: Spontaneous
  Country: US (occurrence: None)
  Receive Date: 20150304
  Receipt Date: 20150304
  Transmission Date: 20150721
  Serious: Yes (Other)
  Sender: FDA-Public Use
  Company Number: AXC-2015-000077

PATIENT
  Age: 19 Year
  Sex: Female

DRUGS (1)
  1. CANASA [Suspect]
     Active Substance: MESALAMINE
     Indication: PRODUCT USED FOR UNKNOWN INDICATION

REACTIONS (5)
  - Rectal discharge [None]
  - Swelling [None]
  - Fluid retention [None]
  - Diarrhoea haemorrhagic [None]
  - Abdominal distension [None]
